FAERS Safety Report 7253370 (Version 8)
Quarter: 2013Q4

REPORT INFORMATION
  Report Type: Spontaneous
  Country: US (occurrence: US)
  Receive Date: 20100123
  Receipt Date: 20131224
  Transmission Date: 20140711
  Serious: Yes (Hospitalization, Other)
  Sender: FDA-Public Use
  Company Number: US-JNJFOC-20100106337

PATIENT
  Age: 59 Year
  Sex: Male

DRUGS (3)
  1. LEVAQUIN [Suspect]
     Indication: SINUSITIS
     Route: 048
     Dates: start: 20080516, end: 20080531
  2. STEROID INJECTION NOS [Suspect]
     Indication: PAIN
     Route: 065
  3. CIPRO [Suspect]
     Indication: PRODUCT USED FOR UNKNOWN INDICATION
     Route: 065

REACTIONS (5)
  - Tendon rupture [Recovering/Resolving]
  - Tendon rupture [Recovering/Resolving]
  - Lumbar spinal stenosis [Recovering/Resolving]
  - Osteoarthritis [Unknown]
  - Arthropathy [Recovering/Resolving]
